FAERS Safety Report 9087021 (Version 1)
Quarter: 2013Q1

REPORT INFORMATION
  Report Type: Report from Study
  Country: US (occurrence: US)
  Receive Date: 20130131
  Receipt Date: 20130131
  Transmission Date: 20140127
  Serious: No
  Sender: FDA-Public Use
  Company Number: US-ABBOTT-12P-163-0944433-00

PATIENT
  Sex: Male

DRUGS (1)
  1. HUMIRA [Suspect]
     Route: 058
     Dates: start: 201205

REACTIONS (7)
  - Fatigue [Unknown]
  - Joint stiffness [Unknown]
  - Blister [Unknown]
  - Arthropod bite [Unknown]
  - Somnolence [Unknown]
  - Blister [Unknown]
  - Somnolence [Unknown]
